FAERS Safety Report 20194305 (Version 1)
Quarter: 2021Q4

REPORT INFORMATION
  Report Type: Spontaneous
  Country: US (occurrence: US)
  Receive Date: 20211216
  Receipt Date: 20211216
  Transmission Date: 20220303
  Serious: Yes (Other)
  Sender: FDA-Public Use
  Company Number: US-BAYER-2021A267228

PATIENT
  Age: 84 Year
  Sex: Male

DRUGS (1)
  1. ACETAMINOPHEN\CHLORPHENIRAMINE\DEXTROMETHORPHAN\PHENYLEPHRINE [Suspect]
     Active Substance: ACETAMINOPHEN\CHLORPHENIRAMINE\DEXTROMETHORPHAN\PHENYLEPHRINE
     Dosage: 2 DF, QD
     Route: 048

REACTIONS (2)
  - Foreign body in throat [Recovered/Resolved]
  - Foreign body in throat [Recovered/Resolved]
